FAERS Safety Report 5737571-9 (Version None)
Quarter: 2008Q2

REPORT INFORMATION
  Report Type: 
  Country: None (occurrence: None)
  Receive Date: 20080514
  Receipt Date: 20070706
  Transmission Date: 20081010
  Serious: No
  Sender: FDA-Public Use
  Company Number: US-ABBOTT-07P-163-0374203-00

PATIENT
  Sex: Male
  Weight: 181 kg

DRUGS (11)
  1. ZEMPLAR [Suspect]
     Indication: DIALYSIS
     Route: 058
  2. ZEMPLAR [Suspect]
     Indication: RENAL FAILURE
  3. CALCIUM CARBONATE [Concomitant]
     Indication: DRUG USE FOR UNKNOWN INDICATION
     Route: 048
  4. CALCIUM ACETATE [Concomitant]
     Indication: DRUG USE FOR UNKNOWN INDICATION
     Dosage: 1 WITH EACH MEAL
     Route: 048
  5. NORMADINE [Concomitant]
     Indication: DRUG USE FOR UNKNOWN INDICATION
     Route: 048
  6. LYSINOPRIL [Concomitant]
     Indication: DRUG USE FOR UNKNOWN INDICATION
     Route: 048
  7. NIFEDIPINE [Concomitant]
     Indication: DRUG USE FOR UNKNOWN INDICATION
     Route: 048
  8. NEPHROCAPS [Concomitant]
     Indication: DRUG USE FOR UNKNOWN INDICATION
     Route: 048
  9. MINOXODIL [Concomitant]
     Indication: DRUG USE FOR UNKNOWN INDICATION
     Route: 048
  10. ASPIRIN [Concomitant]
     Indication: DRUG USE FOR UNKNOWN INDICATION
     Route: 048
  11. QUALAQUIN [Concomitant]
     Indication: DRUG USE FOR UNKNOWN INDICATION
     Dosage: 324 MG PRE DIALYSIS
     Route: 048

REACTIONS (5)
  - DRUG ADMINISTERED AT INAPPROPRIATE SITE [None]
  - INCORRECT ROUTE OF DRUG ADMINISTRATION [None]
  - INJECTION SITE BRUISING [None]
  - INJECTION SITE NODULE [None]
  - INJECTION SITE PAIN [None]
